FAERS Safety Report 13921142 (Version 1)
Quarter: 2017Q3

REPORT INFORMATION
  Report Type: Spontaneous
  Country: US (occurrence: US)
  Receive Date: 20170830
  Receipt Date: 20170830
  Transmission Date: 20171127
  Serious: Yes (Hospitalization, Other)
  Sender: FDA-Public Use
  Company Number: US-GLAXOSMITHKLINE-US2017133357

PATIENT
  Age: 62 Year
  Sex: Female

DRUGS (7)
  1. TANZEUM [Suspect]
     Active Substance: ALBIGLUTIDE
     Dosage: 50 MG, UNK
     Route: 058
     Dates: start: 201706, end: 20170823
  2. TANZEUM [Suspect]
     Active Substance: ALBIGLUTIDE
     Indication: TYPE 2 DIABETES MELLITUS
     Dosage: 30 MG, UNK
     Route: 058
     Dates: start: 201704, end: 201706
  3. LOPRESSOR [Concomitant]
     Active Substance: METOPROLOL TARTRATE
  4. ASPIRIN (BABY) [Concomitant]
     Active Substance: ASPIRIN
  5. GLUCOTROL [Concomitant]
     Active Substance: GLIPIZIDE
  6. METFORMIN [Concomitant]
     Active Substance: METFORMIN HYDROCHLORIDE
  7. MICARDIS [Concomitant]
     Active Substance: TELMISARTAN

REACTIONS (6)
  - Lipase increased [Not Recovered/Not Resolved]
  - Drug ineffective [Recovering/Resolving]
  - Back pain [Not Recovered/Not Resolved]
  - Abdominal pain upper [Not Recovered/Not Resolved]
  - Renal disorder [Unknown]
  - Pancreatitis acute [Not Recovered/Not Resolved]

NARRATIVE: CASE EVENT DATE: 201706
